FAERS Safety Report 19273382 (Version 2)
Quarter: 2021Q3

REPORT INFORMATION
  Report Type: Spontaneous
  Country: US (occurrence: US)
  Receive Date: 20210519
  Receipt Date: 20210716
  Transmission Date: 20211014
  Serious: Yes (Life-Threatening, Other)
  Sender: FDA-Public Use
  Company Number: NVSC2021US108139

PATIENT
  Age: 31 Year
  Sex: Female
  Weight: 83 kg

DRUGS (1)
  1. LUTATHERA [Suspect]
     Active Substance: LUTETIUM OXODOTREOTIDE LU-177
     Indication: NEUROENDOCRINE TUMOUR
     Dosage: 1 DF (1 DOSE) (3805)
     Route: 042
     Dates: start: 20200529, end: 20201120

REACTIONS (12)
  - Hepatic failure [Recovered/Resolved with Sequelae]
  - Faeces discoloured [Unknown]
  - Hepatic function abnormal [Unknown]
  - Pruritus [Unknown]
  - Oedema peripheral [Unknown]
  - Chromaturia [Unknown]
  - Abdominal pain [Unknown]
  - Ascites [Unknown]
  - Decreased appetite [Unknown]
  - Jaundice [Unknown]
  - Fatigue [Unknown]
  - Nausea [Unknown]

NARRATIVE: CASE EVENT DATE: 202102
